FAERS Safety Report 7554109-4 (Version None)
Quarter: 2011Q2

REPORT INFORMATION
  Report Type: 
  Country: None (occurrence: None)
  Receive Date: 20110617
  Receipt Date: 20110608
  Transmission Date: 20111010
  Serious: Yes (Death, Other)
  Sender: FDA-Public Use
  Company Number: PT-CELGENEUS-130-50794-11061641

PATIENT

DRUGS (1)
  1. VIDAZA [Suspect]
     Route: 050

REACTIONS (7)
  - ACUTE MYELOID LEUKAEMIA [None]
  - NO THERAPEUTIC RESPONSE [None]
  - BLOOD COUNT ABNORMAL [None]
  - NEOPLASM PROGRESSION [None]
  - DEATH [None]
  - GASTROINTESTINAL TOXICITY [None]
  - SKIN TOXICITY [None]
